FAERS Safety Report 23385055 (Version 1)
Quarter: 2024Q1

REPORT INFORMATION
  Report Type: Report from Study
  Country: NL (occurrence: NL)
  Receive Date: 20240109
  Receipt Date: 20240109
  Transmission Date: 20240410
  Serious: Yes (Hospitalization, Other)
  Sender: FDA-Public Use
  Company Number: NL-ABBVIE-5468376

PATIENT
  Sex: Male

DRUGS (11)
  1. CARBIDOPA\LEVODOPA [Suspect]
     Active Substance: CARBIDOPA\LEVODOPA
     Indication: Parkinson^s disease
     Dosage: ED 1.2 ML; CND 3.0 ML/H   ?DURATION TEXT: REMAINS AT 24 HOURS
     Route: 050
     Dates: start: 20230922, end: 20231030
  2. CARBIDOPA\LEVODOPA [Suspect]
     Active Substance: CARBIDOPA\LEVODOPA
     Dosage: MD 3.0 ML; CD 3.8 ML/H; ED 2.2 ML?REMAINS AT 24 HOURS
     Route: 050
     Dates: start: 20220222
  3. CARBIDOPA\LEVODOPA [Suspect]
     Active Substance: CARBIDOPA\LEVODOPA
     Dosage: CD +0.2 ML/H?REMAINS AT 24 HOURS
     Route: 050
     Dates: start: 20231030, end: 20231102
  4. CARBIDOPA\LEVODOPA [Suspect]
     Active Substance: CARBIDOPA\LEVODOPA
     Dosage: MD 1.0 ML; CD 3.6 ML/H; ED 2.2 ML; CND 3.0 ML/H; END 1.2 ML?REMAINS AT 24 HOURS, START DATE 2023
     Route: 050
  5. CARBIDOPA\LEVODOPA [Suspect]
     Active Substance: CARBIDOPA\LEVODOPA
     Dosage: ED: 1.7ML
     Route: 050
     Dates: start: 20231102, end: 20231108
  6. CARBIDOPA\LEVODOPA [Suspect]
     Active Substance: CARBIDOPA\LEVODOPA
     Dosage: MD 3.0 ML; CD 3.7 ML/H; ED 1.6 ML?REMAINS AT 16 HOURS
     Route: 050
     Dates: start: 20231108, end: 20231108
  7. CARBIDOPA\LEVODOPA [Suspect]
     Active Substance: CARBIDOPA\LEVODOPA
     Dosage: CD 3.5 ML/H ?FIRST AND LAST ADMIN DATE-2023
     Route: 050
  8. LEVODOPA/CARBIDOPA PCH RETARD [Concomitant]
     Indication: Product used for unknown indication
     Dosage: FORM STRENGTH WAS 250 MILLIGRAMS
  9. POLYETHYLENE GLYCOLS [Concomitant]
     Active Substance: POLYETHYLENE GLYCOLS
     Indication: Bowel movement irregularity
  10. CARBIDOPA\LEVODOPA [Concomitant]
     Active Substance: CARBIDOPA\LEVODOPA
     Indication: Product used for unknown indication
     Dosage: TIME INTERVAL: 0.33333333 DAYS: 1.5 AND 2 PIECES?FORM STRENGTH WAS 125 MILLIGRAMS
     Dates: end: 2022
  11. NEUPRO [Concomitant]
     Active Substance: ROTIGOTINE
     Indication: Product used for unknown indication

REACTIONS (24)
  - Ileus [Not Recovered/Not Resolved]
  - Fatigue [Not Recovered/Not Resolved]
  - Grimacing [Recovered/Resolved]
  - Psychomotor hyperactivity [Not Recovered/Not Resolved]
  - Decreased activity [Recovering/Resolving]
  - Gastrointestinal tube insertion [Not Recovered/Not Resolved]
  - Agitation [Recovering/Resolving]
  - Muscle rigidity [Recovering/Resolving]
  - Dyskinesia [Not Recovered/Not Resolved]
  - Underdose [Not Recovered/Not Resolved]
  - Unevaluable event [Not Recovered/Not Resolved]
  - On and off phenomenon [Not Recovered/Not Resolved]
  - Unevaluable event [Not Recovered/Not Resolved]
  - Therapeutic product effect incomplete [Not Recovered/Not Resolved]
  - Parkinson^s disease [Recovering/Resolving]
  - Incorrect dose administered [Not Recovered/Not Resolved]
  - Constipation [Unknown]
  - Intentional device misuse [Not Recovered/Not Resolved]
  - Speech disorder [Not Recovered/Not Resolved]
  - Unevaluable event [Recovering/Resolving]
  - Device occlusion [Not Recovered/Not Resolved]
  - Stress [Not Recovered/Not Resolved]
  - Device issue [Not Recovered/Not Resolved]
  - Walking aid user [Not Recovered/Not Resolved]

NARRATIVE: CASE EVENT DATE: 20230101
